FAERS Safety Report 8232331-1 (Version None)
Quarter: 2012Q1

REPORT INFORMATION
  Report Type: 
  Country: None (occurrence: None)
  Receive Date: 20120323
  Receipt Date: 20120315
  Transmission Date: 20120608
  Serious: Yes (Hospitalization, Other)
  Sender: FDA-Public Use
  Company Number: CA-GLAXOSMITHKLINE-A0930123A

PATIENT
  Sex: Female
  Weight: 59.1 kg

DRUGS (32)
  1. ALBUTEROL [Concomitant]
     Indication: PRODUCT USED FOR UNKNOWN INDICATION
     Dosage: 4PUFF SEE DOSAGE TEXT
     Route: 055
  2. DIAZEPAM [Concomitant]
     Dosage: 10MG FOUR TIMES PER DAY
  3. ARIMIDEX [Concomitant]
     Indication: LIFE EXPECTANCY SHORTENED
     Dosage: 1MG PER DAY
  4. DICLOFENAC SODIUM [Concomitant]
     Indication: BONE PAIN
  5. ASPIRIN [Concomitant]
     Dosage: 85MG PER DAY
  6. ADVAIR DISKUS 100/50 [Suspect]
     Indication: CHRONIC OBSTRUCTIVE PULMONARY DISEASE
     Dosage: 1PUFF TWICE PER DAY
     Route: 055
     Dates: start: 20101101
  7. METOCLOPRAMIDE [Concomitant]
     Indication: GASTROINTESTINAL HYPOMOTILITY
     Dosage: 10MG TWICE PER DAY
  8. CALCIUM CARBONATE [Concomitant]
     Dosage: 400MG PER DAY
  9. VITAMIN B6 [Concomitant]
     Dosage: 250MG PER DAY
  10. MAGNESIUM [Concomitant]
     Dosage: 250MG PER DAY
  11. ATROVENT [Suspect]
     Indication: PRODUCT USED FOR UNKNOWN INDICATION
     Route: 065
     Dates: start: 20111001
  12. PANTOPRAZOLE SODIUM [Concomitant]
     Dosage: 40MG TWICE PER DAY
  13. ALENDRONATE SODIUM [Concomitant]
     Indication: OSTEOPOROSIS
     Dosage: 70MG WEEKLY
  14. VITAMIN D [Concomitant]
     Dosage: 100IU PER DAY
  15. VITAMIN B COMPLEX CAP [Concomitant]
  16. VITAMIN B-12 [Concomitant]
     Dosage: 1200MG PER DAY
  17. LISTERINE [Concomitant]
  18. LOVAZA [Concomitant]
     Dosage: 1000MG TWICE PER DAY
  19. LYRICA [Concomitant]
     Dosage: 150MG TWICE PER DAY
  20. FOLIC ACID [Concomitant]
     Dosage: 1MG PER DAY
  21. VITAMIN B1 TAB [Concomitant]
     Dosage: 100MG PER DAY
  22. SENOKOT [Concomitant]
  23. ZINC SULFATE [Concomitant]
     Dosage: 50MG PER DAY
  24. MOUTH RINSE [Concomitant]
  25. OXYCODONE HCL [Concomitant]
     Dosage: 30MG THREE TIMES PER DAY
  26. OXYCODONE HCL [Concomitant]
     Dosage: 10MG AS REQUIRED
  27. GRAVOL TAB [Concomitant]
     Dosage: 5MG FOUR TIMES PER DAY
  28. BISACODYL [Concomitant]
  29. CALCIUM CARBONATE [Concomitant]
     Dosage: 500MG THREE TIMES PER DAY
  30. GLUCOSAMINE [Concomitant]
     Dosage: 500MG PER DAY
  31. HERCEPTIN [Concomitant]
     Indication: BREAST CANCER
  32. FLOVENT [Suspect]
     Indication: PRODUCT USED FOR UNKNOWN INDICATION
     Dosage: 2PUFF TWICE PER DAY
     Route: 065
     Dates: end: 20101101

REACTIONS (25)
  - RESPIRATORY TRACT INFECTION [None]
  - DYSPNOEA [None]
  - GINGIVAL PAIN [None]
  - ORAL PAIN [None]
  - CHAPPED LIPS [None]
  - ORAL CANDIDIASIS [None]
  - POSTOPERATIVE WOUND COMPLICATION [None]
  - CARDIAC FAILURE CONGESTIVE [None]
  - BALANCE DISORDER [None]
  - ILL-DEFINED DISORDER [None]
  - INFLUENZA [None]
  - DYSPHONIA [None]
  - MASS [None]
  - LEUKOPLAKIA ORAL [None]
  - WALKING AID USER [None]
  - POOR QUALITY SLEEP [None]
  - OROPHARYNGEAL PLAQUE [None]
  - DRUG WITHDRAWAL SYNDROME [None]
  - ASTHENIA [None]
  - PNEUMONIA [None]
  - SKIN EXFOLIATION [None]
  - LOWER RESPIRATORY TRACT INFECTION [None]
  - STOMATITIS [None]
  - DYSPHAGIA [None]
  - ORAL MUCOSAL EXFOLIATION [None]
